FAERS Safety Report 6811864-6 (Version None)
Quarter: 2010Q2

REPORT INFORMATION
  Report Type: 
  Country: None (occurrence: None)
  Receive Date: 20100628
  Receipt Date: 20100618
  Transmission Date: 20101027
  Serious: Yes (Hospitalization)
  Sender: FDA-Public Use
  Company Number: 2010SP012281

PATIENT
  Age: 55 Year
  Sex: Female
  Weight: 65.8 kg

DRUGS (4)
  1. PEGINTERFERON ALFA-2B [Suspect]
     Indication: HEPATITIS C
     Dosage: 0.7 ML;QW
     Dates: start: 20080513
  2. RIBAVIRIN [Suspect]
     Indication: HEPATITIS C
     Dosage: QD,PO
     Route: 048
     Dates: start: 20080513
  3. PROPRANOLOL [Concomitant]
  4. HYDROCHLOROTHIAZIDE [Concomitant]

REACTIONS (4)
  - COUGH [None]
  - LYMPHADENOPATHY [None]
  - ORAL MUCOSAL ERUPTION [None]
  - PYREXIA [None]
